FAERS Safety Report 6465873-X (Version None)
Quarter: 2009Q4

REPORT INFORMATION
  Report Type: 
  Country: None (occurrence: None)
  Receive Date: 20091127
  Receipt Date: 20091116
  Transmission Date: 20100525
  Serious: Yes (Hospitalization)
  Sender: FDA-Public Use
  Company Number: 233140J09USA

PATIENT
  Age: 56 Year
  Sex: Male
  Weight: 93 kg

DRUGS (4)
  1. REBIF [Suspect]
     Indication: MULTIPLE SCLEROSIS
     Dosage: 44 MCG, 3 IN 1 WEEKS, SUBCUTANEOUS
     Route: 058
     Dates: start: 20020301
  2. LOTREL [Concomitant]
  3. ELAVIL [Concomitant]
  4. IBUPROFEN [Concomitant]

REACTIONS (1)
  - PROSTATE CANCER [None]
